FAERS Safety Report 8599095 (Version 5)
Quarter: 2012Q4

REPORT INFORMATION
  Report Type: 
  Country: FI (occurrence: FI)
  Receive Date: 20120605
  Receipt Date: 20120921
  Transmission Date: 20130627
  Serious: No
  Sender: FDA-Public Use
  Company Number: FI-AMGEN-FINSP2011061843

PATIENT
  Sex: Female

DRUGS (1)
  1. PROLIA [Suspect]
     Indication: METASTASES TO BONE
     Dosage: 120 mg, q4wk
     Route: 058

REACTIONS (1)
  - Muscle spasms [Unknown]
